FAERS Safety Report 5723068-9 (Version None)
Quarter: 2008Q2

REPORT INFORMATION
  Report Type: 
  Country: None (occurrence: None)
  Receive Date: 20080425
  Receipt Date: 20080414
  Transmission Date: 20081010
  Serious: Yes (Other)
  Sender: FDA-Public Use
  Company Number: 2008-02414

PATIENT
  Age: 10 Year
  Sex: Male

DRUGS (8)
  1. PREDNISONE [Suspect]
     Indication: ACUTE LYMPHOCYTIC LEUKAEMIA
     Dosage: 20 MG/M2, DAILY, DAY 1; 40 MG/M2, DAILY, DAY 2-3; 60 MG/M2, DAILY, DAY 4,
     Dates: start: 20060101, end: 20060101
  2. PREDNISONE [Suspect]
     Indication: ACUTE LYMPHOCYTIC LEUKAEMIA
     Dosage: 20 MG/M2, DAILY, DAY 1; 40 MG/M2, DAILY, DAY 2-3; 60 MG/M2, DAILY, DAY 4,
     Dates: start: 20060101, end: 20060101
  3. PREDNISONE [Suspect]
     Indication: ACUTE LYMPHOCYTIC LEUKAEMIA
     Dosage: 20 MG/M2, DAILY, DAY 1; 40 MG/M2, DAILY, DAY 2-3; 60 MG/M2, DAILY, DAY 4,
     Dates: start: 20060101, end: 20060101
  4. ASPARAGINASE(ASPARAGINASE) [Suspect]
     Indication: ACUTE LYMPHOCYTIC LEUKAEMIA
     Dosage: 5000 IU/M2/DAY, INTRAMUSCULAR
     Route: 030
     Dates: start: 20060101, end: 20060101
  5. METHOTREXATE [Concomitant]
  6. RASBURICASE (RASBURICASE) [Concomitant]
  7. DAUNORUBICIN HCL [Concomitant]
  8. VINCRISTINE [Concomitant]

REACTIONS (2)
  - HYPERTRIGLYCERIDAEMIA [None]
  - PANCREATITIS [None]
